FAERS Safety Report 20546469 (Version 1)
Quarter: 2022Q1

REPORT INFORMATION
  Report Type: Spontaneous
  Country: US (occurrence: None)
  Receive Date: 20220302
  Receipt Date: 20220302
  Transmission Date: 20220423
  Serious: Yes (unspecified)
  Sender: FDA-Public Use
  Company Number: None

PATIENT
  Age: 16 Year
  Sex: Female
  Weight: 60.75 kg

DRUGS (1)
  1. GUANFACINE HYDROCHLORIDE [Suspect]
     Active Substance: GUANFACINE HYDROCHLORIDE
     Indication: Attention deficit hyperactivity disorder
     Dosage: OTHER QUANTITY : 1 TABLET(S);?FREQUENCY : DAILY;?
     Route: 048
     Dates: start: 20220206, end: 20220211

REACTIONS (7)
  - Dyspnoea [None]
  - Product substitution issue [None]
  - Dizziness [None]
  - Hypotension [None]
  - Headache [None]
  - Product quality issue [None]
  - Product complaint [None]

NARRATIVE: CASE EVENT DATE: 20220209
